FAERS Safety Report 20629984 (Version 1)
Quarter: 2022Q1

REPORT INFORMATION
  Report Type: Report from Study
  Country: CA (occurrence: CA)
  Receive Date: 20220324
  Receipt Date: 20220324
  Transmission Date: 20220424
  Serious: Yes (Hospitalization)
  Sender: FDA-Public Use
  Company Number: CA-JNJFOC-20220338815

PATIENT
  Age: 34 Year
  Sex: Male
  Weight: 99.5 kg

DRUGS (1)
  1. REMICADE [Suspect]
     Active Substance: INFLIXIMAB
     Indication: Colitis ulcerative
     Dosage: REMICADE INFUSION ON 23-MAR-2022 WAS CANCELLED.
     Route: 042
     Dates: start: 20211217

REACTIONS (1)
  - Colectomy [Unknown]

NARRATIVE: CASE EVENT DATE: 20220101
